FAERS Safety Report 8440702-3 (Version None)
Quarter: 2012Q2

REPORT INFORMATION
  Report Type: 
  Country: None (occurrence: None)
  Receive Date: 20120615
  Receipt Date: 20120611
  Transmission Date: 20120825
  Serious: Yes (Life-Threatening, Hospitalization)
  Sender: FDA-Public Use
  Company Number: US-JNJFOC-20120605675

PATIENT
  Sex: Male
  Weight: 83.92 kg

DRUGS (4)
  1. RISPERIDONE [Suspect]
     Indication: SCHIZOPHRENIA
     Route: 048
     Dates: start: 20111101
  2. RISPERIDONE [Suspect]
     Route: 048
     Dates: start: 20111101
  3. COUMADIN [Suspect]
     Indication: ANTICOAGULANT THERAPY
     Route: 065
  4. COUMADIN [Suspect]
     Route: 065

REACTIONS (10)
  - GASTROINTESTINAL HAEMORRHAGE [None]
  - COAGULOPATHY [None]
  - HYPOKINESIA [None]
  - HUNGER [None]
  - WEIGHT INCREASED [None]
  - PULMONARY EMBOLISM [None]
  - PSYCHOTIC DISORDER [None]
  - CONVULSION [None]
  - NAUSEA [None]
  - DEEP VEIN THROMBOSIS [None]
